FAERS Safety Report 19417836 (Version 1)
Quarter: 2021Q2

REPORT INFORMATION
  Report Type: Spontaneous
  Country: US (occurrence: US)
  Receive Date: 20210615
  Receipt Date: 20210615
  Transmission Date: 20210717
  Serious: No
  Sender: FDA-Public Use
  Company Number: None

PATIENT
  Age: 89 Year
  Sex: Female
  Weight: 61.1 kg

DRUGS (21)
  1. COLACE CLEAR [Concomitant]
     Active Substance: DOCUSATE SODIUM
  2. GABAPENTIN. [Concomitant]
     Active Substance: GABAPENTIN
  3. MULTIPLE VITAMIN [Concomitant]
     Active Substance: VITAMINS
  4. MULTI?DAY PLUS MINERALS [Concomitant]
  5. BILBERRY [Concomitant]
     Active Substance: BILBERRY
  6. ACIDOPHILUS [Concomitant]
     Active Substance: LACTOBACILLUS ACIDOPHILUS
  7. FUROSEMIDE. [Concomitant]
     Active Substance: FUROSEMIDE
  8. ERBITUX [Concomitant]
     Active Substance: CETUXIMAB
  9. VITAMIN C [Concomitant]
     Active Substance: ASCORBIC ACID
  10. BRAFTOVI [Suspect]
     Active Substance: ENCORAFENIB
     Indication: COLON CANCER
     Route: 048
     Dates: start: 20210518
  11. COENZYME Q10 [Concomitant]
     Active Substance: DIETARY SUPPLEMENT\UBIDECARENONE
  12. VITAMIN E COMPLETE [Concomitant]
  13. VITAMIN B + C COMPLEX [Concomitant]
  14. ELIQUIS [Concomitant]
     Active Substance: APIXABAN
  15. PRAVASTATIN SODIUM. [Concomitant]
     Active Substance: PRAVASTATIN SODIUM
  16. VITAMIN D?3 ORAL TABLET [Concomitant]
  17. COD LIVER OIL [Concomitant]
     Active Substance: COD LIVER OIL
  18. ALPRAZOLAM. [Concomitant]
     Active Substance: ALPRAZOLAM
  19. ACETAMINOPHEN. [Concomitant]
     Active Substance: ACETAMINOPHEN
  20. AMIODARONE HCL [Concomitant]
     Active Substance: AMIODARONE HYDROCHLORIDE
  21. TRAMADOL HCL [Concomitant]
     Active Substance: TRAMADOL HYDROCHLORIDE

REACTIONS (2)
  - Abdominal discomfort [None]
  - Diarrhoea [None]
